FAERS Safety Report 15150283 (Version 1)
Quarter: 2018Q3

REPORT INFORMATION
  Report Type: Spontaneous
  Country: DE (occurrence: DE)
  Receive Date: 20180716
  Receipt Date: 20180716
  Transmission Date: 20181010
  Serious: Yes (Hospitalization)
  Sender: FDA-Public Use
  Company Number: DE-US WORLDMEDS, LLC-STA_00017680

PATIENT
  Age: 71 Year
  Sex: Male

DRUGS (1)
  1. APOMORPHINE HYDROCHLORIDE [Suspect]
     Active Substance: APOMORPHINE HYDROCHLORIDE
     Indication: PRODUCT USED FOR UNKNOWN INDICATION
     Dosage: 07:00 AM TO 11:00 PM
     Route: 058
     Dates: start: 20091125, end: 20101107

REACTIONS (3)
  - Face oedema [Unknown]
  - Oedema peripheral [Unknown]
  - Haemolysis [Unknown]

NARRATIVE: CASE EVENT DATE: 20101105
